FAERS Safety Report 9136587 (Version 1)
Quarter: 2013Q1

REPORT INFORMATION
  Report Type: Spontaneous
  Country: US (occurrence: US)
  Receive Date: 20130304
  Receipt Date: 20130304
  Transmission Date: 20140127
  Serious: No
  Sender: FDA-Public Use
  Company Number: US-ABBOTT-09P-163-0795490-00

PATIENT
  Age: 63 Year
  Sex: Male
  Weight: 72 kg

DRUGS (18)
  1. ANDROGEL [Suspect]
     Indication: BLOOD TESTOSTERONE DECREASED
     Dosage: DAILY DOSE: 5 GRAM(S)
     Route: 061
     Dates: start: 20091005
  2. ANDROGEL [Suspect]
     Indication: OSTEOPENIA
  3. DAYQUIL [Concomitant]
     Indication: NASAL CONGESTION
     Dosage: DAILY DOSE:  UNKNOWN
     Route: 048
     Dates: start: 200909
  4. DAYQUIL [Concomitant]
     Indication: NASOPHARYNGITIS
  5. PSEUDOEPHEDRINE [Concomitant]
     Indication: NASAL CONGESTION
     Dosage: DAILY DOSE:  UNKNOWN
     Route: 048
     Dates: start: 200909
  6. PSEUDOEPHEDRINE [Concomitant]
     Indication: NASOPHARYNGITIS
  7. QUETIAPINE [Concomitant]
     Indication: DEPRESSION
     Dosage: DAILY DOSE:  UNKNOWN
     Route: 048
  8. SYNTHROID [Concomitant]
     Indication: HYPOTHYROIDISM
     Dosage: DAILY DOSE:  UNKNOWN
     Route: 048
  9. KLONOPIN [Concomitant]
     Indication: ANXIETY
     Dosage: DAILY DOSE:  UNKNOWN
     Route: 048
  10. PROZAC [Concomitant]
     Indication: DEPRESSION
     Dosage: DAILY DOSE:  UNKNOWN
     Route: 048
  11. TYLENOL [Concomitant]
     Indication: TENSION HEADACHE
     Dosage: DAILY DOSE:  UNKNOWN
     Route: 048
  12. MOTRIN [Concomitant]
     Indication: DEPRESSION
     Dosage: DAILY DOSE:  UNKNOWN
     Route: 048
  13. MINOXIDIL [Concomitant]
     Indication: ALOPECIA
     Dosage: DAILY DOSE:  UNKNOWN
     Route: 065
     Dates: start: 200904
  14. PRAVACHOL [Concomitant]
     Indication: PRODUCT USED FOR UNKNOWN INDICATION
     Dosage: DAILY DOSE:  UNKNOWN
     Route: 048
  15. FISH OIL [Concomitant]
     Indication: PRODUCT USED FOR UNKNOWN INDICATION
     Dosage: DAILY DOSE:  UNKNOWN
     Route: 048
  16. CALCIUM [Concomitant]
     Indication: PRODUCT USED FOR UNKNOWN INDICATION
     Dosage: DAILY DOSE:  UNKNOWN
     Route: 048
  17. COGENTIN [Concomitant]
     Indication: PRODUCT USED FOR UNKNOWN INDICATION
     Dosage: DAILY DOSE:  UNKNOWN
     Route: 048
  18. ARICEPT [Concomitant]
     Indication: PRODUCT USED FOR UNKNOWN INDICATION
     Dosage: DAILY DOSE:  UNKNOWN
     Route: 048

REACTIONS (5)
  - Glossodynia [Not Recovered/Not Resolved]
  - Alopecia [Not Recovered/Not Resolved]
  - Alopecia [Not Recovered/Not Resolved]
  - Off label use [Not Recovered/Not Resolved]
  - Osteopenia [Not Recovered/Not Resolved]
